FAERS Safety Report 16202707 (Version 1)
Quarter: 2019Q2

REPORT INFORMATION
  Report Type: Spontaneous
  Country: US (occurrence: US)
  Receive Date: 20190416
  Receipt Date: 20190416
  Transmission Date: 20190711
  Serious: Yes (Other)
  Sender: FDA-Public Use
  Company Number: US-MYLANLABS-2019M1034831

PATIENT
  Age: 73 Year
  Sex: Female
  Weight: 67 kg

DRUGS (1)
  1. POTASSIUM CHLORIDE EXTENDED-RELEASE TABLETS, USP [Suspect]
     Active Substance: POTASSIUM CHLORIDE
     Indication: SUPPLEMENTATION THERAPY
     Dosage: 10 MILLIEQUIVALENT, QD (1 TABLET, QD)
     Route: 048
     Dates: end: 20190404

REACTIONS (4)
  - Dehydration [Unknown]
  - Intestinal obstruction [Unknown]
  - Product residue present [Unknown]
  - Diarrhoea [Recovering/Resolving]

NARRATIVE: CASE EVENT DATE: 20190404
